FAERS Safety Report 6377416-X (Version None)
Quarter: 2009Q3

REPORT INFORMATION
  Report Type: 
  Country: None (occurrence: None)
  Receive Date: 20090925
  Receipt Date: 20090915
  Transmission Date: 20100115
  Serious: Yes (Other)
  Sender: FDA-Public Use
  Company Number: US-BAYER-200920183NA

PATIENT
  Age: 63 Year
  Sex: Male

DRUGS (11)
  1. CAMPATH [Suspect]
     Indication: PROLYMPHOCYTIC LEUKAEMIA
     Dosage: TOTAL DAILY DOSE: 30 MG
     Route: 058
     Dates: start: 20090415, end: 20090615
  2. CAMPATH [Suspect]
     Dosage: TOTAL DAILY DOSE: 30 MG
     Route: 058
     Dates: end: 20090720
  3. TYLENOL (CAPLET) [Concomitant]
  4. BENADRYL [Concomitant]
  5. BACTRIM [Concomitant]
  6. ALLOPURINOL [Concomitant]
  7. INSULIN [Concomitant]
     Dosage: BETWEEN 21 AND 24 UNITS PER DAY
  8. VALTREX [Concomitant]
     Dates: start: 20090506, end: 20090508
  9. DIAZEM [Concomitant]
  10. ACYCLOVIR [Concomitant]
     Dosage: TOTAL DAILY DOSE: 2400 MG
  11. ACYCLOVIR [Concomitant]

REACTIONS (14)
  - BLOOD GLUCOSE INCREASED [None]
  - BLOOD POTASSIUM INCREASED [None]
  - BLOOD PRESSURE DECREASED [None]
  - DECREASED APPETITE [None]
  - GLOMERULAR FILTRATION RATE DECREASED [None]
  - HEADACHE [None]
  - IRON DEFICIENCY [None]
  - LOSS OF CONSCIOUSNESS [None]
  - NEUTROPHIL COUNT DECREASED [None]
  - PRURITUS GENERALISED [None]
  - RASH MACULAR [None]
  - RASH PRURITIC [None]
  - WEIGHT DECREASED [None]
  - WHITE BLOOD CELL COUNT DECREASED [None]
